FAERS Safety Report 7376489-5 (Version None)
Quarter: 2011Q1

REPORT INFORMATION
  Report Type: 
  Country: None (occurrence: None)
  Receive Date: 20110325
  Receipt Date: 20110314
  Transmission Date: 20110831
  Serious: Yes (Hospitalization, Other)
  Sender: FDA-Public Use
  Company Number: PHHO2011US04801

PATIENT
  Sex: Female
  Weight: 104 kg

DRUGS (3)
  1. AFINITOR [Suspect]
     Indication: GLIOBLASTOMA
     Dosage: UNK
     Route: 048
     Dates: start: 20101020
  2. TEMOZOLOMIDE [Concomitant]
     Indication: GLIOBLASTOMA
     Dosage: UNK
     Route: 042
     Dates: start: 20101020
  3. RADIATION [Concomitant]
     Indication: GLIOBLASTOMA

REACTIONS (7)
  - SINUS TACHYCARDIA [None]
  - ENCEPHALOMALACIA [None]
  - DIZZINESS POSTURAL [None]
  - PULMONARY EMBOLISM [None]
  - DYSPNOEA [None]
  - FATIGUE [None]
  - THROMBOCYTOPENIA [None]
